FAERS Safety Report 8826866 (Version 2)
Quarter: 2012Q4

REPORT INFORMATION
  Report Type: 
  Country: US (occurrence: US)
  Receive Date: 20121005
  Receipt Date: 20121109
  Transmission Date: 20130627
  Serious: Yes (Hospitalization)
  Sender: FDA-Public Use
  Company Number: US-ALEXION-A201201868

PATIENT
  Sex: Male

DRUGS (8)
  1. SOLIRIS 300MG [Suspect]
     Indication: PAROXYSMAL NOCTURNAL HAEMOGLOBINURIA
     Dosage: 600 mg, qw x 4
     Route: 042
     Dates: start: 20111129
  2. SOLIRIS 300MG [Suspect]
     Dosage: 900 mg, q2w
     Route: 042
     Dates: end: 20120926
  3. CARTIA [Concomitant]
     Dosage: UNK
  4. SIMVASTATIN [Concomitant]
     Dosage: UNK
  5. NAMENDA [Concomitant]
     Dosage: UNK
  6. ARICEPT [Concomitant]
     Dosage: UNK
  7. FOLIC ACID [Concomitant]
     Dosage: UNK
  8. ZOLOFT [Concomitant]
     Dosage: UNK

REACTIONS (3)
  - Prostate cancer metastatic [Not Recovered/Not Resolved]
  - Haemoglobin decreased [Recovering/Resolving]
  - Asthenia [Unknown]
